FAERS Safety Report 10421917 (Version 1)
Quarter: 2014Q3

REPORT INFORMATION
  Report Type: Spontaneous
  Country: FI (occurrence: FI)
  Receive Date: 20140901
  Receipt Date: 20140901
  Transmission Date: 20150326
  Serious: Yes (Life-Threatening, Other)
  Sender: FDA-Public Use
  Company Number: FI-ROCHE-1454215

PATIENT
  Age: 71 Year
  Sex: Female

DRUGS (21)
  1. ALENDRONAT [Concomitant]
     Active Substance: ALENDRONATE SODIUM
     Indication: OSTEOPOROSIS
     Route: 048
  2. FURESIS [Concomitant]
     Active Substance: FUROSEMIDE
     Route: 065
  3. PANADOL FORTE [Concomitant]
     Route: 065
  4. OXIKLORIN [Concomitant]
     Active Substance: HYDROXYCHLOROQUINE SULFATE
     Indication: RHEUMATOID ARTHRITIS
     Route: 048
  5. AMPHO MORONAL [Concomitant]
     Route: 065
  6. FURESIS [Concomitant]
     Active Substance: FUROSEMIDE
     Dosage: WHEN NEEDED
     Route: 065
  7. MABTHERA [Suspect]
     Active Substance: RITUXIMAB
     Indication: RHEUMATOID ARTHRITIS
     Route: 042
     Dates: start: 2012
  8. PROGYNOVA [Concomitant]
     Active Substance: ESTRADIOL VALERATE
  9. OXYNORM [Concomitant]
     Active Substance: OXYCODONE HYDROCHLORIDE
     Dosage: WHEN NEEDED
     Route: 065
  10. MABTHERA [Suspect]
     Active Substance: RITUXIMAB
     Route: 042
     Dates: start: 201303
  11. SALAZOPYRIN [Concomitant]
     Active Substance: SULFASALAZINE
     Indication: RHEUMATOID ARTHRITIS
     Route: 048
     Dates: start: 2014
  12. PREDNISONE. [Suspect]
     Active Substance: PREDNISONE
     Indication: RHEUMATOID ARTHRITIS
     Route: 048
  13. MAREVAN FORTE [Concomitant]
     Indication: ATRIAL FIBRILLATION
     Dosage: 1 TABLET ON SATURDAYS, HALF TABLET ON OTHER DAYS
     Route: 065
  14. AZATHIOPRINE. [Concomitant]
     Active Substance: AZATHIOPRINE
  15. ALENDRONAT [Concomitant]
     Active Substance: ALENDRONATE SODIUM
  16. MABTHERA [Suspect]
     Active Substance: RITUXIMAB
     Route: 042
     Dates: start: 20131002
  17. MABTHERA [Suspect]
     Active Substance: RITUXIMAB
     Route: 042
     Dates: start: 20131016, end: 20131016
  18. KALCIPOS-D [Concomitant]
     Active Substance: CALCIUM CARBONATE\CHOLECALCIFEROL
     Indication: OSTEOPOROSIS
     Route: 048
  19. NEXIUM [Concomitant]
     Active Substance: ESOMEPRAZOLE MAGNESIUM
     Route: 065
  20. ORLOC [Concomitant]
     Active Substance: BISOPROLOL FUMARATE
     Route: 065
  21. NOVORAPID [Concomitant]
     Active Substance: INSULIN ASPART
     Dosage: WHEN NEEDED ACCORDING TO BLOOD SUGAR LEVELS
     Route: 065

REACTIONS (9)
  - Pneumonia [Recovering/Resolving]
  - Joint swelling [Unknown]
  - Delusion [Recovered/Resolved]
  - Anticoagulation drug level below therapeutic [Unknown]
  - Rotator cuff syndrome [Unknown]
  - Arthritis infective [Recovering/Resolving]
  - Synovitis [Unknown]
  - Streptococcal sepsis [Recovered/Resolved]
  - Clostridium difficile infection [Recovering/Resolving]

NARRATIVE: CASE EVENT DATE: 20130105
